FAERS Safety Report 8387713-4 (Version None)
Quarter: 2012Q2

REPORT INFORMATION
  Report Type: 
  Country: None (occurrence: None)
  Receive Date: 20120525
  Receipt Date: 20120515
  Transmission Date: 20120825
  Serious: Yes (Hospitalization)
  Sender: FDA-Public Use
  Company Number: US-ELI_LILLY_AND_COMPANY-US201202005197

PATIENT
  Sex: Female

DRUGS (12)
  1. CALCIUM [Concomitant]
  2. FORTEO [Suspect]
     Dosage: 20 UG, QD
     Route: 065
  3. VITAMIN C [Concomitant]
  4. TYLENOL                                 /SCH/ [Concomitant]
  5. FORTEO [Suspect]
     Indication: OSTEOPOROSIS
     Dosage: 20 UG, QD
     Route: 065
     Dates: start: 20120208
  6. VITAMIN D [Concomitant]
  7. VITAMIN B COMPLEX CAP [Concomitant]
  8. STOOL SOFTENER [Concomitant]
  9. PROBIOTICS [Concomitant]
  10. VALIUM [Concomitant]
     Indication: SURGERY
  11. FORTEO [Suspect]
     Dosage: 20 UG, QD
     Route: 065
  12. FORTEO [Suspect]
     Dosage: 20 UG, QD
     Route: 065

REACTIONS (9)
  - ABDOMINAL DISCOMFORT [None]
  - INJECTION SITE HAEMORRHAGE [None]
  - CLAVICLE FRACTURE [None]
  - PAIN IN EXTREMITY [None]
  - DRUG DOSE OMISSION [None]
  - INJECTION SITE PAIN [None]
  - DIARRHOEA [None]
  - FATIGUE [None]
  - FLATULENCE [None]
